FAERS Safety Report 17664956 (Version 2)
Quarter: 2020Q3

REPORT INFORMATION
  Report Type: Spontaneous
  Country: US (occurrence: US)
  Receive Date: 20200414
  Receipt Date: 20200714
  Transmission Date: 20201102
  Serious: No
  Sender: FDA-Public Use
  Company Number: US-PFIZER INC-2020151218

PATIENT
  Age: 58 Year
  Sex: Male

DRUGS (1)
  1. XELJANZ [Suspect]
     Active Substance: TOFACITINIB CITRATE
     Indication: COLITIS ULCERATIVE
     Dosage: 10 MG, 2X/DAY
     Route: 048
     Dates: start: 20190701

REACTIONS (6)
  - Condition aggravated [Unknown]
  - Anxiety [Unknown]
  - Dysstasia [Unknown]
  - Contusion [Recovering/Resolving]
  - Joint effusion [Unknown]
  - Seasonal allergy [Unknown]
